FAERS Safety Report 9351022 (Version 1)
Quarter: 2013Q2

REPORT INFORMATION
  Report Type: Spontaneous
  Country: US (occurrence: US)
  Receive Date: 20130617
  Receipt Date: 20130617
  Transmission Date: 20140414
  Serious: Yes (Other)
  Sender: FDA-Public Use
  Company Number: PR-ASTRAZENECA-2013SE38178

PATIENT
  Sex: Male

DRUGS (2)
  1. BRILINTA [Suspect]
     Indication: STENT PLACEMENT
     Route: 048
     Dates: start: 2013, end: 2013
  2. ASPIRIN [Concomitant]
     Indication: ANTIPLATELET THERAPY
     Route: 048

REACTIONS (1)
  - Haemorrhage [Unknown]
